FAERS Safety Report 9778906 (Version 1)
Quarter: 2013Q4

REPORT INFORMATION
  Report Type: Spontaneous
  Country: BR (occurrence: BR)
  Receive Date: 20131223
  Receipt Date: 20131223
  Transmission Date: 20140711
  Serious: Yes (Hospitalization)
  Sender: FDA-Public Use
  Company Number: BR-009507513-1312BRA009552

PATIENT
  Age: 41 Year
  Sex: Female
  Weight: 55 kg

DRUGS (1)
  1. MERCILON CONTI [Suspect]
     Indication: OVARIAN CYST
     Dosage: 1 TABLET, QD
     Route: 048
     Dates: start: 2007

REACTIONS (4)
  - Nephrolithiasis [Recovered/Resolved]
  - Renal stone removal [Recovered/Resolved]
  - Off label use [Unknown]
  - Drug administration error [Unknown]
